FAERS Safety Report 22090627 (Version 1)
Quarter: 2023Q1

REPORT INFORMATION
  Report Type: Spontaneous
  Country: None (occurrence: A1)
  Receive Date: 20230313
  Receipt Date: 20230313
  Transmission Date: 20230418
  Serious: No
  Sender: FDA-Public Use
  Company Number: A1-Nexgen Pharma, Inc.-2139012

PATIENT
  Age: 42 Year
  Sex: Female
  Weight: 120.91 kg

DRUGS (2)
  1. RELTONE 200 MG [Suspect]
     Active Substance: URSODIOL
     Indication: Product used for unknown indication
     Route: 048
     Dates: end: 20230131
  2. Banamatric Multiple Vitamin [Concomitant]
     Route: 065

REACTIONS (1)
  - Back pain [Unknown]
